FAERS Safety Report 7414554-4 (Version None)
Quarter: 2011Q2

REPORT INFORMATION
  Report Type: 
  Country: None (occurrence: None)
  Receive Date: 20110414
  Receipt Date: 20110411
  Transmission Date: 20111010
  Serious: Yes (Hospitalization)
  Sender: FDA-Public Use
  Company Number: IT-SANOFI-AVENTIS-2011SA019395

PATIENT
  Age: 75 Year
  Sex: Male

DRUGS (10)
  1. ALLOPURINOL [Concomitant]
     Route: 048
  2. LASIX [Concomitant]
     Route: 048
  3. NITROGLYCERIN [Concomitant]
     Route: 062
  4. IRBESARTAN + HYDROCHLOROTHIAZIDE [Concomitant]
     Route: 065
  5. CLEXANE [Suspect]
     Route: 058
     Dates: start: 20100101, end: 20110320
  6. COUMADIN [Suspect]
     Route: 048
     Dates: start: 20110322
  7. SIMVASTATIN [Concomitant]
     Route: 048
  8. DOXAZOSIN MESYLATE [Concomitant]
     Route: 048
  9. COUMADIN [Suspect]
     Route: 048
     Dates: start: 20100101, end: 20110320
  10. ASPIRIN [Suspect]
     Indication: PLATELET AGGREGATION INHIBITION
     Route: 048
     Dates: start: 20100101, end: 20110320

REACTIONS (2)
  - INTERNATIONAL NORMALISED RATIO INCREASED [None]
  - HAEMOPTYSIS [None]
